FAERS Safety Report 16995714 (Version 2)
Quarter: 2019Q4

REPORT INFORMATION
  Report Type: Spontaneous
  Country: DE (occurrence: DE)
  Receive Date: 20191105
  Receipt Date: 20191203
  Transmission Date: 20200122
  Serious: Yes (Death, Other)
  Sender: FDA-Public Use
  Company Number: DE-INCYTE CORPORATION-2019IN009627

PATIENT

DRUGS (8)
  1. PREDNISON [Suspect]
     Active Substance: PREDNISONE
     Dosage: 1.5 MG, QD
     Route: 065
     Dates: start: 20170522
  2. CELLCEPT [Suspect]
     Active Substance: MYCOPHENOLATE MOFETIL\MYCOPHENOLATE MOFETIL HYDROCHLORIDE
     Indication: CHRONIC GRAFT VERSUS HOST DISEASE
     Dosage: 1000 MG, QD
     Route: 048
     Dates: start: 20160425, end: 20170515
  3. JAKAVI [Suspect]
     Active Substance: RUXOLITINIB
     Indication: CHRONIC GRAFT VERSUS HOST DISEASE
     Dosage: 20 MG, QD
     Route: 048
     Dates: start: 20160826
  4. PREGABALIN. [Concomitant]
     Active Substance: PREGABALIN
     Indication: POLYNEUROPATHY
     Dosage: 100 MG, QD
     Route: 048
     Dates: start: 201701, end: 201706
  5. PREDNISON [Suspect]
     Active Substance: PREDNISONE
     Dosage: 2.5 MG, QD
     Route: 065
     Dates: start: 20160222
  6. PREDNISON [Suspect]
     Active Substance: PREDNISONE
     Indication: CHRONIC GRAFT VERSUS HOST DISEASE
     Dosage: 12.5 MG, QD
     Route: 048
     Dates: start: 20160601
  7. ORELOX [Concomitant]
     Active Substance: CEFPODOXIME
     Indication: ANTIBIOTIC PROPHYLAXIS
     Dosage: 400 MG, QD (IN CASE OF INFECTIONS)
     Route: 048
  8. FLUCONAZOL [Concomitant]
     Active Substance: FLUCONAZOLE
     Indication: ANTIFUNGAL TREATMENT
     Dosage: 200 MG, QD (IN CASE OF INFECTIONS)
     Route: 048

REACTIONS (4)
  - Septic shock [Fatal]
  - Neutropenia [Fatal]
  - Acute myeloid leukaemia [Fatal]
  - Product use in unapproved indication [Recovering/Resolving]

NARRATIVE: CASE EVENT DATE: 20170515
